FAERS Safety Report 7202715-9 (Version None)
Quarter: 2010Q4

REPORT INFORMATION
  Report Type: 
  Country: None (occurrence: None)
  Receive Date: 20101220
  Receipt Date: 20101206
  Transmission Date: 20110411
  Serious: Yes (Hospitalization)
  Sender: FDA-Public Use
  Company Number: 023440

PATIENT
  Sex: Male

DRUGS (8)
  1. CERTOLIZUMAB PEGOL (CERTOLIZUMAB PEGOL) [Suspect]
     Indication: RHEUMATOID ARTHRITIS
     Dosage: 200 MG 1X/2 WEEKS SUBCUTANEOUS
     Route: 058
     Dates: start: 20091015
  2. PREDNISOLONE [Suspect]
     Indication: RHEUMATOID ARTHRITIS
     Dosage: ADEQUATE DOSE; TRANSDERMAL
     Route: 062
     Dates: start: 20100830
  3. PREDNISOLONE [Suspect]
     Indication: RHEUMATOID ARTHRITIS
     Dosage: 3.5 MG, ORAL
     Route: 048
     Dates: start: 20101109
  4. MOBIC [Suspect]
     Indication: RHEUMATOID ARTHRITIS
     Dosage: 15 MG, 10MG AND 5MG, ORAL
     Route: 048
     Dates: start: 20060427
  5. SALAZOSULFAPYRIDINE (SALAZOSULFAPYRIDINE) [Suspect]
     Indication: RHEUMATOID ARTHRITIS
     Dosage: 500 MG, ORAL
     Route: 048
     Dates: start: 20070821
  6. FAMOTIDINE [Suspect]
     Indication: GASTRITIS PROPHYLAXIS
     Dosage: 20 MG ORAL
     Route: 048
     Dates: start: 20090526
  7. PELEX  (PELEX) (NOT SPECIFIED) [Suspect]
     Indication: NASOPHARYNGITIS
     Dosage: 3 MG ORAL
     Route: 048
     Dates: start: 20101126
  8. KETOPROFEN [Concomitant]

REACTIONS (3)
  - DUODENAL ULCER HAEMORRHAGE [None]
  - NASOPHARYNGITIS [None]
  - UPPER GASTROINTESTINAL HAEMORRHAGE [None]
